FAERS Safety Report 5407937-5 (Version None)
Quarter: 2007Q3

REPORT INFORMATION
  Report Type: 
  Country: None (occurrence: None)
  Receive Date: 20070713
  Receipt Date: 20070501
  Transmission Date: 20080115
  Serious: No
  Sender: FDA-Public Use
  Company Number: 2007SP001592

PATIENT
  Age: 57 Year
  Sex: Female

DRUGS (8)
  1. LUNESTA [Suspect]
     Indication: INSOMNIA
     Dosage: 2 MG;HS;ORAL
     Route: 048
     Dates: start: 20070430
  2. ASACOL [Concomitant]
  3. HYOSCYAMINE [Concomitant]
  4. DIPHENOXYLATE [Concomitant]
  5. TRAMADOL HCL [Concomitant]
  6. IMURAN [Concomitant]
  7. REMICADE [Concomitant]
  8. ASPIRIN [Concomitant]

REACTIONS (5)
  - AGITATION [None]
  - DYSGEUSIA [None]
  - FEELING ABNORMAL [None]
  - PARADOXICAL DRUG REACTION [None]
  - RESTLESSNESS [None]
